FAERS Safety Report 15898169 (Version 3)
Quarter: 2023Q4

REPORT INFORMATION
  Report Type: Spontaneous
  Country: FR (occurrence: FR)
  Receive Date: 20190201
  Receipt Date: 20231221
  Transmission Date: 20240110
  Serious: Yes (Hospitalization, Other)
  Sender: FDA-Public Use
  Company Number: FR-AFSSAPS-CN20182334

PATIENT
  Age: 101 Year
  Sex: Female
  Weight: 44 kg

DRUGS (14)
  1. BISOPROLOL [Suspect]
     Active Substance: BISOPROLOL\BISOPROLOL FUMARATE
     Indication: Hypertension
     Dosage: 1.25 MILLIGRAM, ONCE A DAY
     Route: 048
     Dates: start: 20181102
  2. BUDESONIDE [Suspect]
     Active Substance: BUDESONIDE
     Indication: Asthma
     Dosage: 2 DOSAGE FORM, ONCE A DAY (1MG/2ML)
     Route: 055
     Dates: start: 20181102
  3. FUROSEMIDE [Suspect]
     Active Substance: FUROSEMIDE
     Indication: Hypertension
     Dosage: 20 MILLIGRAM, ONCE A DAY
     Route: 048
     Dates: start: 20181102
  4. ALBUTEROL SULFATE [Suspect]
     Active Substance: ALBUTEROL SULFATE
     Indication: Asthma
     Dosage: 2 DOSAGE FORM, ONCE A DAY (2.5M/2.5ML) (1-0-1 (2.5M/2.5ML), 2 DOSAGE FORM, QD)
     Route: 055
     Dates: start: 20181102
  5. SODIUM CHLORIDE [Suspect]
     Active Substance: SODIUM CHLORIDE
     Indication: Hyponatraemia
     Dosage: 2000 MILLIGRAM, ONCE A DAY
     Route: 048
     Dates: start: 20181102
  6. REFRESH CELLUVISC [Suspect]
     Active Substance: CARBOXYMETHYLCELLULOSE SODIUM
     Indication: Lacrimation decreased
     Dosage: 3 GTT DROPS, ONCE A DAY (1-1-1 WEATHER IN BOTH EYES)
     Route: 047
     Dates: start: 20181102
  7. DIGOXIN [Suspect]
     Active Substance: DIGOXIN
     Indication: Cardiac failure
     Dosage: 1 DOSAGE FORM, ONCE A DAY (1/2-0-0 (0.25MG))
     Route: 048
     Dates: start: 20181102
  8. OXAZEPAM [Suspect]
     Active Substance: OXAZEPAM
     Indication: Anxiety
     Dosage: 5 MILLIGRAM, ONCE A DAY (0-0-1/2 (10 MG))
     Route: 048
     Dates: start: 20181102
  9. CALCIUM ACETATE [Suspect]
     Active Substance: CALCIUM ACETATE
     Indication: Hypovitaminosis
     Dosage: 1 DOSAGE FORM, ONCE A DAY
     Route: 048
     Dates: start: 20181102
  10. VITAMIN D3 [Suspect]
     Active Substance: CHOLECALCIFEROL
     Indication: Hypovitaminosis
     Dosage: 1 DOSAGE FORM, ONCE A DAY
     Route: 048
     Dates: start: 20181102
  11. KARDEGIC [Suspect]
     Active Substance: ASPIRIN DL-LYSINE
     Indication: Thrombosis prophylaxis
     Dosage: 75 MILLIGRAM, ONCE A DAY
     Route: 048
     Dates: start: 20181102
  12. OFLOXACIN [Suspect]
     Active Substance: OFLOXACIN
     Indication: Respiratory tract infection
     Dosage: 400 MILLIGRAM, ONCE A DAY
     Route: 048
     Dates: start: 20181122, end: 20181127
  13. POLYETHYLENE GLYCOLS [Suspect]
     Active Substance: POLYETHYLENE GLYCOLS
     Indication: Constipation
     Dosage: 20 GRAM, DAILY
     Route: 048
     Dates: start: 20181102
  14. POLYETHYLENE GLYCOL [Suspect]
     Active Substance: POLYETHYLENE GLYCOL
     Indication: Constipation
     Dosage: 20 GRAM, ONCE A DAY
     Route: 048
     Dates: start: 20181102

REACTIONS (2)
  - Hallucination [Recovering/Resolving]
  - Confusional state [Recovering/Resolving]

NARRATIVE: CASE EVENT DATE: 20181123
